FAERS Safety Report 6283901-1 (Version None)
Quarter: 2009Q3

REPORT INFORMATION
  Report Type: 
  Country: None (occurrence: None)
  Receive Date: 20090722
  Receipt Date: 20090722
  Transmission Date: 20100115
  Serious: Yes (Other)
  Sender: FDA-Public Use
  Company Number: None

PATIENT
  Age: 54 Year
  Sex: Male
  Weight: 90.2658 kg

DRUGS (1)
  1. LANOXIN [Suspect]
     Indication: HYPERTROPHIC CARDIOMYOPATHY
     Dosage: 2 TO 3 TABLETS DAILY PO
     Route: 048
     Dates: start: 20050625, end: 20050626

REACTIONS (1)
  - ARRHYTHMIA [None]
